FAERS Safety Report 15830903 (Version 1)
Quarter: 2019Q1

REPORT INFORMATION
  Report Type: Report from Study
  Country: None (occurrence: CA)
  Receive Date: 20190116
  Receipt Date: 20190116
  Transmission Date: 20190417
  Serious: Yes (Life-Threatening, Hospitalization, Other)
  Sender: FDA-Public Use
  Company Number: CA-ABBVIE-18K-028-2488769-00

PATIENT
  Sex: Female

DRUGS (2)
  1. HUMIRA [Suspect]
     Active Substance: ADALIMUMAB
     Indication: CROHN^S DISEASE
     Route: 058
     Dates: start: 20171205, end: 2018
  2. HUMIRA [Suspect]
     Active Substance: ADALIMUMAB
     Route: 058
     Dates: start: 2018, end: 2018

REACTIONS (6)
  - Immune system disorder [Unknown]
  - Necrotising fasciitis [Unknown]
  - Rectal abscess [Unknown]
  - Crohn^s disease [Unknown]
  - Apparent death [Unknown]
  - Systemic infection [Unknown]

NARRATIVE: CASE EVENT DATE: 2018
